FAERS Safety Report 13591289 (Version 1)
Quarter: 2017Q2

REPORT INFORMATION
  Report Type: Spontaneous
  Country: US (occurrence: US)
  Receive Date: 20170530
  Receipt Date: 20170530
  Transmission Date: 20170830
  Serious: Yes (Other)
  Sender: FDA-Public Use
  Company Number: None

PATIENT
  Age: 56 Year
  Sex: Female
  Weight: 77.11 kg

DRUGS (1)
  1. LANSOPRAZOLE, 30 MG [Suspect]
     Active Substance: LANSOPRAZOLE
     Indication: GASTROOESOPHAGEAL REFLUX DISEASE
     Route: 048
     Dates: start: 20170405, end: 20170530

REACTIONS (5)
  - Product odour abnormal [None]
  - Product quality issue [None]
  - Gastrooesophageal reflux disease [None]
  - Condition aggravated [None]
  - Eructation [None]

NARRATIVE: CASE EVENT DATE: 20170405
